FAERS Safety Report 6662167-4 (Version None)
Quarter: 2010Q1

REPORT INFORMATION
  Report Type: 
  Country: None (occurrence: None)
  Receive Date: 20100331
  Receipt Date: 20100317
  Transmission Date: 20100710
  Serious: Yes (Hospitalization)
  Sender: FDA-Public Use
  Company Number: CI-MYLANLABS-2010S1004484

PATIENT
  Age: 33 Year
  Sex: Male
  Weight: 68 kg

DRUGS (9)
  1. ZIDOVUDINE [Suspect]
     Indication: HIV INFECTION
     Route: 065
     Dates: start: 19981001, end: 20030301
  2. DIDANOSINE [Suspect]
     Indication: HIV INFECTION
     Route: 065
     Dates: start: 19981001, end: 19991001
  3. SAQUINAVIR [Suspect]
     Indication: HIV INFECTION
     Route: 065
     Dates: start: 19981201, end: 19991001
  4. STAVUDINE [Suspect]
     Indication: HIV INFECTION
     Route: 065
     Dates: start: 19991001, end: 20020101
  5. LAMIVUDINE [Suspect]
     Indication: HIV INFECTION
     Route: 065
     Dates: start: 19991001
  6. NELFINAVIR [Suspect]
     Indication: HIV INFECTION
     Route: 065
     Dates: start: 19991001, end: 20020101
  7. EFAVIRENZ [Suspect]
     Indication: HIV INFECTION
     Route: 065
     Dates: start: 20020101, end: 20030301
  8. TENOFOVIR DISOPROXIL FUMARATE [Suspect]
     Indication: HIV INFECTION
     Route: 065
     Dates: start: 20030301
  9. KALETRA                            /01506501/ [Suspect]
     Indication: HIV INFECTION
     Route: 065
     Dates: start: 20030301

REACTIONS (1)
  - OSTEONECROSIS [None]
